FAERS Safety Report 9999642 (Version 4)
Quarter: 2016Q3

REPORT INFORMATION
  Report Type: Report from Study
  Country: US (occurrence: US)
  Receive Date: 20140228
  Receipt Date: 20160720
  Transmission Date: 20161109
  Serious: Yes (Other)
  Sender: FDA-Public Use
  Company Number: PHEH2013US002433

PATIENT
  Sex: Female

DRUGS (2)
  1. SANDIMMUNE NEORAL [Suspect]
     Active Substance: CYCLOSPORINE
     Indication: RENAL TRANSPLANT
  2. SANDIMMUNE NEORAL [Suspect]
     Active Substance: CYCLOSPORINE
     Indication: COMPLICATIONS OF TRANSPLANTED KIDNEY
     Dosage: 5 DF DAILY (3 CAPSULE, (75 MG) IN MORNING AND 2 CAPSULE (50 MG) IN EVENING)
     Route: 048

REACTIONS (4)
  - Neoplasm malignant [Unknown]
  - Dementia [Unknown]
  - Intraocular melanoma [Unknown]
  - Neoplasm skin [Unknown]
